FAERS Safety Report 8238250-9 (Version None)
Quarter: 2012Q1

REPORT INFORMATION
  Report Type: 
  Country: None (occurrence: None)
  Receive Date: 20120327
  Receipt Date: 20120314
  Transmission Date: 20120608
  Serious: Yes (Other)
  Sender: FDA-Public Use
  Company Number: US-ROCHE-1052375

PATIENT
  Sex: Female

DRUGS (8)
  1. BONIVA [Suspect]
     Indication: OSTEOPOROSIS
     Dates: start: 20070101, end: 20100301
  2. BONIVA [Suspect]
     Indication: OSTEOPENIA
  3. FOSAMAX [Suspect]
     Indication: OSTEOPENIA
  4. RECLAST [Suspect]
     Indication: OSTEOPENIA
  5. ZOMETA [Suspect]
     Indication: OSTEOPENIA
  6. FOSAMAX [Suspect]
     Indication: OSTEOPOROSIS
     Dates: start: 20070101, end: 20100301
  7. ZOMETA [Suspect]
     Indication: OSTEOPOROSIS
     Dates: start: 20070101, end: 20100301
  8. RECLAST [Suspect]
     Indication: OSTEOPOROSIS
     Dates: start: 20070101, end: 20100301

REACTIONS (2)
  - FEMUR FRACTURE [None]
  - EMOTIONAL DISTRESS [None]
